FAERS Safety Report 19560702 (Version 1)
Quarter: 2021Q3

REPORT INFORMATION
  Report Type: Spontaneous
  Country: US (occurrence: US)
  Receive Date: 20210715
  Receipt Date: 20210715
  Transmission Date: 20211014
  Serious: No
  Sender: FDA-Public Use
  Company Number: US-TITAN PHARMACEUTICALS-2020TAN00065

PATIENT
  Sex: Male
  Weight: 90.7 kg

DRUGS (5)
  1. PROBUPHINE [Suspect]
     Active Substance: BUPRENORPHINE HYDROCHLORIDE
     Indication: DRUG USE DISORDER
     Dosage: 4 DOSAGE UNITS, ONCE IN RIGHT ARM
     Dates: start: 2019
  2. CYMBALTA [Concomitant]
     Active Substance: DULOXETINE HYDROCHLORIDE
  3. BUPRENOPHINE [Concomitant]
     Active Substance: BUPRENORPHINE
     Dosage: 12 MG ^LOW DOSE^
     Route: 048
  4. PROBUPHINE [Suspect]
     Active Substance: BUPRENORPHINE HYDROCHLORIDE
     Indication: PAIN
     Dosage: UNK, ONCE IN LEFT ARM
     Dates: start: 20200325
  5. PROBUPHINE [Suspect]
     Active Substance: BUPRENORPHINE HYDROCHLORIDE
     Dosage: 1 DOSAGE UNITS (WASN^T ABLE TO BE REMOVED)
     Dates: start: 2020

REACTIONS (6)
  - Incorrect product administration duration [Recovered/Resolved]
  - Complication of device removal [Not Recovered/Not Resolved]
  - Device breakage [Not Recovered/Not Resolved]
  - Device use error [Recovered/Resolved]
  - Soft tissue disorder [Unknown]
  - Device dislocation [Not Recovered/Not Resolved]

NARRATIVE: CASE EVENT DATE: 2020
